FAERS Safety Report 19278456 (Version 1)
Quarter: 2021Q2

REPORT INFORMATION
  Report Type: Spontaneous
  Country: US (occurrence: US)
  Receive Date: 20210520
  Receipt Date: 20210520
  Transmission Date: 20210717
  Serious: Yes (Hospitalization, Other)
  Sender: FDA-Public Use
  Company Number: US-UNITED THERAPEUTICS-UNT-2021-009065

PATIENT
  Age: 46 Year
  Sex: Female

DRUGS (2)
  1. REMODULIN [Suspect]
     Active Substance: TREPROSTINIL
     Indication: PULMONARY ARTERIAL HYPERTENSION
     Dosage: UNK UNK, CONTINUING
     Route: 058
     Dates: start: 20201231
  2. REMODULIN [Suspect]
     Active Substance: TREPROSTINIL
     Dosage: 0.0323 ?G/KG, CONTINUING
     Route: 058

REACTIONS (2)
  - Hypoxia [Unknown]
  - Cardiac failure [Unknown]

NARRATIVE: CASE EVENT DATE: 20210514
